FAERS Safety Report 17771802 (Version 1)
Quarter: 2020Q2

REPORT INFORMATION
  Report Type: Spontaneous
  Country: JP (occurrence: JP)
  Receive Date: 20200512
  Receipt Date: 20200512
  Transmission Date: 20200714
  Serious: Yes (Hospitalization, Other)
  Sender: FDA-Public Use
  Company Number: JP-PFIZER INC-2020096769

PATIENT
  Age: 77 Year
  Sex: Male
  Weight: 58 kg

DRUGS (6)
  1. BUFFERIN COMBINATION [Concomitant]
     Active Substance: ASPIRIN\DIHYDROXYALUMINUM AMINOACETATE ANHYDROUS\MAGNESIUM CARBONATE
     Dosage: 81 MG, 1X/DAY
     Route: 048
     Dates: start: 20040415
  2. METGLUCO [Concomitant]
     Active Substance: METFORMIN HYDROCHLORIDE
     Dosage: UNK, 3X/DAY
     Dates: start: 20190425
  3. AMENALIEF [Suspect]
     Active Substance: AMENAMEVIR
     Indication: HERPES ZOSTER
     Dosage: 400 MG, DAILY
     Route: 048
     Dates: start: 20200225, end: 20200302
  4. LYRICA [Suspect]
     Active Substance: PREGABALIN
     Indication: NEURALGIA
     Dosage: 75 MG, 2X/DAY
     Route: 048
     Dates: start: 20200227, end: 20200302
  5. NESINA [Concomitant]
     Active Substance: ALOGLIPTIN BENZOATE
     Dosage: 25 MG, 1X/DAY
     Route: 048
     Dates: start: 20130226
  6. SILODOSIN. [Concomitant]
     Active Substance: SILODOSIN
     Dosage: 4 MG, 2X/DAY
     Route: 048
     Dates: start: 20190425

REACTIONS (5)
  - Rhabdomyolysis [Recovered/Resolved]
  - Blood glucose increased [Unknown]
  - Dizziness [Unknown]
  - Decreased appetite [Unknown]
  - Pneumonia [Recovering/Resolving]

NARRATIVE: CASE EVENT DATE: 20200302
